FAERS Safety Report 8683493 (Version 2)
Quarter: 2012Q4

REPORT INFORMATION
  Report Type: 
  Country: US (occurrence: US)
  Receive Date: 20120726
  Receipt Date: 20121121
  Transmission Date: 20130627
  Serious: No
  Sender: FDA-Public Use
  Company Number: US-BAYER-2012-074452

PATIENT

DRUGS (1)
  1. MAGNEVIST [Suspect]
     Dosage: 20 ml, UNK
     Dates: start: 201207, end: 201207

REACTIONS (1)
  - Myalgia [None]
